FAERS Safety Report 21332540 (Version 4)
Quarter: 2022Q4

REPORT INFORMATION
  Report Type: Spontaneous
  Country: US (occurrence: US)
  Receive Date: 20220914
  Receipt Date: 20221129
  Transmission Date: 20230112
  Serious: No
  Sender: FDA-Public Use
  Company Number: US-KARYOPHARM-2022KPT001047

PATIENT

DRUGS (11)
  1. XPOVIO [Suspect]
     Active Substance: SELINEXOR
     Indication: Brain neoplasm malignant
     Dosage: 80 MG, WEEKLY
     Route: 048
     Dates: start: 20220720, end: 202210
  2. CIPROFLOXACIN\CIPROFLOXACIN HYDROCHLORIDE [Concomitant]
     Active Substance: CIPROFLOXACIN\CIPROFLOXACIN HYDROCHLORIDE
  3. CITALOPRAM [Concomitant]
     Active Substance: CITALOPRAM HYDROBROMIDE
  4. DEXAMETHASONE [Concomitant]
     Active Substance: DEXAMETHASONE
  5. KEPPRA [Concomitant]
     Active Substance: LEVETIRACETAM
  6. LOVASTATIN [Concomitant]
     Active Substance: LOVASTATIN
  7. OLANZAPINE [Concomitant]
     Active Substance: OLANZAPINE
  8. ONDANSETRON [Concomitant]
     Active Substance: ONDANSETRON
  9. PREDNISOLONE [Concomitant]
     Active Substance: PREDNISOLONE
     Route: 047
  10. PROCHLORPERAZINE [Concomitant]
     Active Substance: PROCHLORPERAZINE
  11. TRIAMCINOLONE [Concomitant]
     Active Substance: TRIAMCINOLONE
     Route: 061

REACTIONS (6)
  - Brain neoplasm malignant [Unknown]
  - Nausea [Unknown]
  - Fatigue [Unknown]
  - Decreased appetite [Unknown]
  - Platelet count decreased [Unknown]
  - Off label use [Unknown]

NARRATIVE: CASE EVENT DATE: 20220101
